FAERS Safety Report 14539752 (Version 2)
Quarter: 2018Q1

REPORT INFORMATION
  Report Type: Spontaneous
  Country: ES (occurrence: ES)
  Receive Date: 20180216
  Receipt Date: 20180223
  Transmission Date: 20180509
  Serious: Yes (Hospitalization)
  Sender: FDA-Public Use
  Company Number: ES-AUROBINDO-AUR-APL-2018-007386

PATIENT
  Age: 43 Year
  Sex: Female
  Weight: 48.4 kg

DRUGS (3)
  1. VENLAFAXINE [Suspect]
     Active Substance: VENLAFAXINE HYDROCHLORIDE
     Indication: DEPRESSION
     Dosage: 75 MG, DAILY
     Route: 048
     Dates: start: 20160828
  2. LAQUINIMOD SODIUM [Suspect]
     Active Substance: LAQUINIMOD SODIUM
     Indication: HUNTINGTON^S DISEASE
     Dosage: 0 MILLIGRAM DAILY; DB PHASE- 0.5MG, 1.0MG, OR MATCHING PLACEBO
     Route: 048
     Dates: start: 20161114, end: 20171108
  3. AMANTADINE. [Suspect]
     Active Substance: AMANTADINE HYDROCHLORIDE
     Indication: CHOREA
     Dosage: FREQUENCY 2-2-0
     Route: 048
     Dates: start: 20160303

REACTIONS (1)
  - Psychiatric decompensation [Recovering/Resolving]

NARRATIVE: CASE EVENT DATE: 20171212
